FAERS Safety Report 26050816 (Version 1)
Quarter: 2025Q4

REPORT INFORMATION
  Report Type: Report from Study
  Country: EU (occurrence: EU)
  Receive Date: 20251116
  Receipt Date: 20251116
  Transmission Date: 20260117
  Serious: Yes (Death)
  Sender: ABBVIE
  Company Number: EU-ABBVIE-6549855

PATIENT
  Age: 77 Year
  Sex: Male

DRUGS (1)
  1. FOSCARBIDOPA\FOSLEVODOPA [Suspect]
     Active Substance: FOSCARBIDOPA\FOSLEVODOPA
     Indication: Parkinson^s disease
     Dosage: DAILY DOSE: 2.260,8MG/DAY?CRL: 0.22ML/H?CRB: 0.46ML/H?CRH: 0.46ML/H?ED: 0.15ML?LD: 0.8ML
     Route: 058
     Dates: start: 20250226

REACTIONS (1)
  - Cardiac arrest [Fatal]

NARRATIVE: CASE EVENT DATE: 20251112
